FAERS Safety Report 8133411-1 (Version None)
Quarter: 2012Q1

REPORT INFORMATION
  Report Type: 
  Country: None (occurrence: None)
  Receive Date: 20120213
  Receipt Date: 20120118
  Transmission Date: 20120608
  Serious: No
  Sender: FDA-Public Use
  Company Number: US-ROXANE LABORATORIES, INC.-2012-RO-00494RO

PATIENT
  Sex: Female
  Weight: 84 kg

DRUGS (3)
  1. CLOTRIMAZOLE [Suspect]
     Indication: CANDIDIASIS
     Route: 048
     Dates: start: 20111201, end: 20111201
  2. METRONIDAZOLE [Suspect]
     Indication: DIVERTICULITIS
     Dosage: 1500 MG
     Route: 048
     Dates: start: 20111126, end: 20111205
  3. CIPROFLOXACIN HYDROCHLORIDE [Suspect]
     Indication: DIVERTICULITIS
     Dosage: 1000 MG
     Route: 048
     Dates: start: 20111126, end: 20111205

REACTIONS (3)
  - BODY TEMPERATURE DECREASED [None]
  - CHILLS [None]
  - CANDIDIASIS [None]
